FAERS Safety Report 16419313 (Version 2)
Quarter: 2019Q3

REPORT INFORMATION
  Report Type: Report from Study
  Country: None (occurrence: TW)
  Receive Date: 20190612
  Receipt Date: 20190701
  Transmission Date: 20191004
  Serious: Yes (Other)
  Sender: FDA-Public Use
  Company Number: TW-ABBVIE-19K-153-2811198-00

PATIENT
  Age: 49 Year
  Sex: Female

DRUGS (7)
  1. SALAZINE [Concomitant]
     Active Substance: SULFASALAZINE
     Indication: ANKYLOSING SPONDYLITIS
     Route: 048
     Dates: start: 20180122, end: 20180708
  2. FUBIFEN PAP [Concomitant]
     Indication: ANKYLOSING SPONDYLITIS
     Route: 062
     Dates: start: 20180917, end: 20190319
  3. HUMIRA [Suspect]
     Active Substance: ADALIMUMAB
     Indication: ANKYLOSING SPONDYLITIS
     Route: 058
     Dates: start: 20170329
  4. BIO CALCIUM+D3 [Concomitant]
     Indication: OSTEOPOROSIS PROPHYLAXIS
     Route: 048
     Dates: start: 20180122
  5. HUMIRA [Suspect]
     Active Substance: ADALIMUMAB
     Indication: ANKYLOSING SPONDYLITIS
     Route: 058
     Dates: end: 20190522
  6. BIO CALCIUM+D3 [Concomitant]
     Indication: VITAMIN SUPPLEMENTATION
  7. ARCOXIA [Concomitant]
     Active Substance: ETORICOXIB
     Indication: ANKYLOSING SPONDYLITIS
     Route: 048
     Dates: start: 20180122

REACTIONS (9)
  - Mycobacterium tuberculosis complex test positive [Unknown]
  - Red blood cell sedimentation rate increased [Unknown]
  - C-reactive protein increased [Unknown]
  - Haemoglobin decreased [Unknown]
  - Haematocrit decreased [Unknown]
  - Throat irritation [Not Recovered/Not Resolved]
  - Blood uric acid increased [Unknown]
  - Alanine aminotransferase increased [Unknown]
  - Aspartate aminotransferase increased [Unknown]

NARRATIVE: CASE EVENT DATE: 20180820
